FAERS Safety Report 5492253-6 (Version None)
Quarter: 2007Q4

REPORT INFORMATION
  Report Type: 
  Country: None (occurrence: None)
  Receive Date: 20071022
  Receipt Date: 20071012
  Transmission Date: 20080405
  Serious: Yes (Hospitalization)
  Sender: FDA-Public Use
  Company Number: GB-ASTRAZENECA-2007GB02100

PATIENT
  Age: 19 Year
  Sex: Female

DRUGS (4)
  1. MEROPENEM [Suspect]
     Indication: PSEUDOMONAS INFECTION
     Route: 042
     Dates: start: 20010501
  2. CEFTAZIDIME [Suspect]
     Indication: PSEUDOMONAS INFECTION
     Dates: start: 20010601
  3. COLOMYCIN [Suspect]
     Indication: PSEUDOMONAS INFECTION
     Dates: start: 20010501
  4. TOBRAMYCIN [Suspect]
     Indication: PSEUDOMONAS INFECTION
     Dates: start: 20010501

REACTIONS (7)
  - DRUG HYPERSENSITIVITY [None]
  - EOSINOPHIL COUNT INCREASED [None]
  - HAEMATURIA [None]
  - LEUKOCYTURIA [None]
  - PYREXIA [None]
  - RASH MACULAR [None]
  - RENAL FAILURE ACUTE [None]
